FAERS Safety Report 10298466 (Version 2)
Quarter: 2014Q3

REPORT INFORMATION
  Report Type: Spontaneous
  Country: US (occurrence: US)
  Receive Date: 20140711
  Receipt Date: 20140711
  Transmission Date: 20150326
  Serious: Yes (Hospitalization, Other)
  Sender: FDA-Public Use
  Company Number: US-009507513-2011SP031110

PATIENT
  Sex: Female
  Weight: 62.6 kg

DRUGS (4)
  1. NUVARING [Suspect]
     Active Substance: ETHINYL ESTRADIOL\ETONOGESTREL
     Dates: start: 200403, end: 200508
  2. OXYBUTIN [Suspect]
     Active Substance: OXYBUTYNIN
     Indication: PRODUCT USED FOR UNKNOWN INDICATION
  3. NUVARING [Suspect]
     Active Substance: ETHINYL ESTRADIOL\ETONOGESTREL
     Dates: start: 20091114, end: 20091224
  4. NUVARING [Suspect]
     Active Substance: ETHINYL ESTRADIOL\ETONOGESTREL
     Indication: CONTRACEPTION
     Dates: start: 200908, end: 20091224

REACTIONS (21)
  - Dermal cyst [Unknown]
  - Hypertonic bladder [Not Recovered/Not Resolved]
  - Gastritis [Unknown]
  - Syncope [Not Recovered/Not Resolved]
  - Back pain [Unknown]
  - Lipase increased [Unknown]
  - Pain [Not Recovered/Not Resolved]
  - Migraine [Not Recovered/Not Resolved]
  - Depression [Unknown]
  - Abdominal pain upper [Unknown]
  - Pain in extremity [Unknown]
  - Thrombosis [Unknown]
  - Eye infection [Unknown]
  - Fatigue [Unknown]
  - Pulmonary embolism [Recovered/Resolved]
  - Human papilloma virus test positive [Unknown]
  - Nausea [Unknown]
  - Colitis [Unknown]
  - Ovarian cyst [Unknown]
  - Hypersensitivity [Unknown]
  - Headache [Not Recovered/Not Resolved]

NARRATIVE: CASE EVENT DATE: 2004
